FAERS Safety Report 5577316-9 (Version None)
Quarter: 2007Q4

REPORT INFORMATION
  Report Type: 
  Country: None (occurrence: None)
  Receive Date: 20071228
  Receipt Date: 20071218
  Transmission Date: 20080405
  Serious: Yes (Other)
  Sender: FDA-Public Use
  Company Number: CA-PFIZER INC-2007087528

PATIENT
  Sex: Female
  Weight: 65.8 kg

DRUGS (3)
  1. LYRICA [Suspect]
     Indication: PAIN
     Route: 048
     Dates: start: 20070524, end: 20070701
  2. CELEBREX [Concomitant]
     Indication: PAIN
     Dosage: DAILY DOSE:200MG
  3. WELLBUTRIN [Concomitant]
     Dosage: DAILY DOSE:300MG

REACTIONS (6)
  - CONTUSION [None]
  - MUSCLE SPASMS [None]
  - MUSCLE TWITCHING [None]
  - PAIN [None]
  - PRURITUS [None]
  - SCRATCH [None]
